FAERS Safety Report 21298853 (Version 1)
Quarter: 2022Q3

REPORT INFORMATION
  Report Type: Spontaneous
  Country: US (occurrence: None)
  Receive Date: 20220905
  Receipt Date: 20220905
  Transmission Date: 20221026
  Serious: Yes (Hospitalization)
  Sender: FDA-Public Use
  Company Number: None

PATIENT
  Age: 76 Year
  Sex: Male
  Weight: 92 kg

DRUGS (3)
  1. RIVAROXABAN [Suspect]
     Active Substance: RIVAROXABAN
     Indication: Atrial fibrillation
     Dosage: FREQUENCY : DAILY;?
     Route: 048
     Dates: start: 20210715, end: 20220104
  2. RIVAROXABAN [Suspect]
     Active Substance: RIVAROXABAN
     Indication: Mitral valve replacement
  3. ASPIRIN [Suspect]
     Active Substance: ASPIRIN

REACTIONS (5)
  - Dyspnoea [None]
  - Haemoptysis [None]
  - Haemoglobin decreased [None]
  - Anaemia [None]
  - Melaena [None]

NARRATIVE: CASE EVENT DATE: 20211110
